FAERS Safety Report 8504587-9 (Version None)
Quarter: 2012Q3

REPORT INFORMATION
  Report Type: 
  Country: None (occurrence: None)
  Receive Date: 20120711
  Receipt Date: 20120626
  Transmission Date: 20120928
  Serious: Yes (Disabling, Other)
  Sender: FDA-Public Use
  Company Number: HK-ROCHE-1082086

PATIENT
  Age: 65 Year
  Sex: Female

DRUGS (1)
  1. HERCEPTIN [Suspect]
     Indication: BREAST CANCER

REACTIONS (4)
  - COORDINATION ABNORMAL [None]
  - CENTRAL NERVOUS SYSTEM LESION [None]
  - EATING DISORDER [None]
  - DISEASE PROGRESSION [None]
